FAERS Safety Report 7794356-X (Version None)
Quarter: 2011Q4

REPORT INFORMATION
  Report Type: 
  Country: None (occurrence: None)
  Receive Date: 20111004
  Receipt Date: 20110927
  Transmission Date: 20120403
  Serious: Yes (Other)
  Sender: FDA-Public Use
  Company Number: US-PFIZER INC-2011230633

PATIENT
  Sex: Female
  Weight: 57.596 kg

DRUGS (5)
  1. METOPROLOL [Concomitant]
     Dosage: 50 MG, 2X/DAY
  2. NEURONTIN [Suspect]
     Indication: PAIN
     Dosage: 200 MG, 2X/DAY
     Route: 048
     Dates: start: 20110923, end: 20110926
  3. XANAX [Concomitant]
     Dosage: 0.5 MG, 1X/DAY
  4. PREDNISONE [Concomitant]
     Dosage: 20 MG, 1X/DAY
  5. REGLAN [Concomitant]
     Dosage: 100 MG, 1X/DAY

REACTIONS (4)
  - FACE OEDEMA [None]
  - LIP OEDEMA [None]
  - SWOLLEN TONGUE [None]
  - EYE OEDEMA [None]
